FAERS Safety Report 4486791-2 (Version None)
Quarter: 2004Q4

REPORT INFORMATION
  Report Type: 
  Country: None (occurrence: None)
  Receive Date: 20041027
  Receipt Date: 20041019
  Transmission Date: 20050328
  Serious: Yes (Hospitalization)
  Sender: FDA-Public Use
  Company Number: FR-MERCK-0410FRA00071

PATIENT
  Age: 69 Year
  Sex: Male

DRUGS (6)
  1. VIOXX [Suspect]
     Indication: BONE PAIN
     Route: 048
     Dates: start: 20000101, end: 20041018
  2. VIOXX [Suspect]
     Route: 048
     Dates: start: 20000101, end: 20041018
  3. VIOXX [Suspect]
     Route: 048
     Dates: start: 20000101, end: 20041018
  4. ASPIRIN LYSINE [Concomitant]
     Route: 048
     Dates: start: 20030801
  5. CLOPIDOGREL BISULFATE [Concomitant]
     Route: 048
     Dates: start: 20030801
  6. FLUVASTATIN SODIUM [Concomitant]
     Route: 048
     Dates: start: 20030801

REACTIONS (2)
  - MYOCARDIAL INFARCTION [None]
  - STENT OCCLUSION [None]
